FAERS Safety Report 11800405 (Version 1)
Quarter: 2015Q4

REPORT INFORMATION
  Report Type: Spontaneous
  Country: US (occurrence: US)
  Receive Date: 20151203
  Receipt Date: 20151203
  Transmission Date: 20160305
  Serious: Yes (Hospitalization)
  Sender: FDA-Public Use
  Company Number: US-BAXTER-2015BAX064469

PATIENT
  Age: 15 Year
  Sex: Female

DRUGS (6)
  1. IFEX [Suspect]
     Active Substance: IFOSFAMIDE
     Indication: EWING^S SARCOMA
     Dosage: 14 CYCLES
     Route: 065
  2. LIDOCAINE. [Concomitant]
     Active Substance: LIDOCAINE
     Indication: ANAESTHESIA
     Route: 065
  3. DOXORUBICIN [Suspect]
     Active Substance: DOXORUBICIN
     Indication: EWING^S SARCOMA
     Dosage: 14 CYCLES
     Route: 065
  4. VINCRISTINE [Suspect]
     Active Substance: VINCRISTINE
     Indication: EWING^S SARCOMA
     Dosage: 14 CYCLES
     Route: 065
  5. ETOPOSIDE. [Suspect]
     Active Substance: ETOPOSIDE
     Indication: EWING^S SARCOMA
     Dosage: 14 CYCLES
     Route: 065
  6. CYCLOPHOSPHAMIDE FOR INJECTION, USP [Suspect]
     Active Substance: CYCLOPHOSPHAMIDE
     Indication: EWING^S SARCOMA
     Dosage: 14 CYCLES
     Route: 065

REACTIONS (6)
  - Weight decreased [Recovered/Resolved]
  - Rectal fissure [Recovered/Resolved]
  - Amenorrhoea [Recovered/Resolved]
  - Neutropenia [Recovered/Resolved]
  - Migraine [Recovered/Resolved]
  - Nausea [Recovered/Resolved]
